FAERS Safety Report 8847819 (Version 2)
Quarter: 2012Q4

REPORT INFORMATION
  Report Type: Report from Study
  Country: None (occurrence: GB)
  Receive Date: 20121018
  Receipt Date: 20121120
  Transmission Date: 20130627
  Serious: Yes (Hospitalization)
  Sender: FDA-Public Use
  Company Number: GB-TEVA-364388ISR

PATIENT
  Age: 74 Year
  Sex: Male

DRUGS (3)
  1. TRIMETHOPRIM [Suspect]
     Indication: INFECTION
  2. FUCIDIN [Suspect]
     Indication: WOUND INFECTION STAPHYLOCOCCAL
  3. SAXAGLIPTIN / PLACEBO [Concomitant]
     Indication: TYPE 2 DIABETES MELLITUS
     Dates: start: 20100723, end: 20120709

REACTIONS (2)
  - Renal failure acute [Recovered/Resolved]
  - Jaundice [Recovered/Resolved]
